FAERS Safety Report 8480950-X (Version None)
Quarter: 2012Q3

REPORT INFORMATION
  Report Type: 
  Country: None (occurrence: None)
  Receive Date: 20120702
  Receipt Date: 20120607
  Transmission Date: 20120928
  Serious: No
  Sender: FDA-Public Use
  Company Number: US-JNJFOC-20120605029

PATIENT
  Sex: Male
  Weight: 81.65 kg

DRUGS (6)
  1. INVEGA [Suspect]
     Dosage: 3 MG
     Route: 048
     Dates: start: 20120530
  2. ABILIFY [Concomitant]
     Indication: ANTIDEPRESSANT THERAPY
     Route: 048
     Dates: end: 20120101
  3. LITHIUM CARBONATE [Concomitant]
     Indication: BIPOLAR I DISORDER
     Dosage: 300 MG TABLET
     Route: 048
     Dates: start: 20090101
  4. HYDROXYUREA [Concomitant]
     Indication: SICKLE CELL ANAEMIA
     Dosage: 500 MG
     Route: 048
     Dates: start: 20111001
  5. INVEGA [Suspect]
     Indication: BIPOLAR I DISORDER
     Route: 048
     Dates: start: 20120501, end: 20120501
  6. INVEGA [Suspect]
     Dosage: 3 MG TABLET
     Route: 048
     Dates: start: 20120501, end: 20120529

REACTIONS (5)
  - IRRITABILITY [None]
  - AGITATION [None]
  - COGNITIVE DISORDER [None]
  - SOMNOLENCE [None]
  - CONDITION AGGRAVATED [None]
